FAERS Safety Report 9726194 (Version 2)
Quarter: 2014Q2

REPORT INFORMATION
  Report Type: Spontaneous
  Country: US (occurrence: US)
  Receive Date: 20131203
  Receipt Date: 20140428
  Transmission Date: 20141212
  Serious: Yes (Hospitalization)
  Sender: FDA-Public Use
  Company Number: US-BAYER-2013-144579

PATIENT
  Age: 27 Year
  Sex: Female
  Weight: 53.52 kg

DRUGS (2)
  1. MIRENA [Suspect]
     Indication: CONTRACEPTION
     Dosage: 20 MCG/24HR, CONT
     Route: 015
     Dates: start: 20100729, end: 20110111
  2. MIRENA [Suspect]
     Indication: MENORRHAGIA

REACTIONS (11)
  - Uterine perforation [None]
  - Dyspareunia [None]
  - Medical device discomfort [None]
  - Abdominal pain [None]
  - Dyspepsia [None]
  - Milk allergy [None]
  - Depression [None]
  - Emotional distress [None]
  - Anxiety [None]
  - Scar [None]
  - Injury [None]
